FAERS Safety Report 21327012 (Version 1)
Quarter: 2022Q3

REPORT INFORMATION
  Report Type: Report from Study
  Country: CA (occurrence: CA)
  Receive Date: 20220913
  Receipt Date: 20220913
  Transmission Date: 20221027
  Serious: Yes (Hospitalization, Other)
  Sender: FDA-Public Use
  Company Number: CA-JNJFOC-20220320237

PATIENT
  Age: 70 Year
  Sex: Female

DRUGS (1)
  1. REMICADE [Suspect]
     Active Substance: INFLIXIMAB
     Indication: Rheumatoid arthritis
     Dosage: PATIENT RECEIVED LAST DOSE ON 11-JAN-2022
     Route: 042

REACTIONS (6)
  - Sepsis [Unknown]
  - Postoperative wound infection [Unknown]
  - Diverticular perforation [Unknown]
  - Diverticulum [Unknown]
  - Intestinal obstruction [Unknown]
  - Arthritis [Unknown]

NARRATIVE: CASE EVENT DATE: 20220101
